FAERS Safety Report 8276674-4 (Version None)
Quarter: 2012Q2

REPORT INFORMATION
  Report Type: 
  Country: None (occurrence: None)
  Receive Date: 20120412
  Receipt Date: 20120412
  Transmission Date: 20120825
  Serious: Yes (Life-Threatening)
  Sender: FDA-Public Use
  Company Number: None

PATIENT
  Age: 27 Year
  Sex: Female
  Weight: 68.6 kg

DRUGS (1)
  1. LAMOTRIGINE [Suspect]

REACTIONS (8)
  - FATIGUE [None]
  - HEPATIC ENZYME INCREASED [None]
  - RASH MACULO-PAPULAR [None]
  - THROMBOCYTOPENIA [None]
  - PYREXIA [None]
  - LEUKOPENIA [None]
  - DECREASED APPETITE [None]
  - FOREIGN BODY [None]
